FAERS Safety Report 8893797 (Version 1)
Quarter: 2012Q4

REPORT INFORMATION
  Report Type: 
  Country: US (occurrence: US)
  Receive Date: 20121107
  Receipt Date: 20121107
  Transmission Date: 20130627
  Serious: Yes (Other)
  Sender: FDA-Public Use
  Company Number: US-AMGEN-USASP2012036200

PATIENT
  Age: 38 Year
  Sex: Female
  Weight: 72.56 kg

DRUGS (4)
  1. ENBREL [Suspect]
     Indication: PSORIATIC ARTHROPATHY
     Dosage: 50 mg, qwk
     Route: 058
     Dates: start: 20120525
  2. FOLIC ACID [Concomitant]
     Dosage: 1 mg, UNK
  3. OCELLA [Concomitant]
     Dosage: UNK
  4. METHOTREXATE [Concomitant]
     Dosage: 1 g, UNK

REACTIONS (6)
  - Injection site reaction [Unknown]
  - Injection site discolouration [Unknown]
  - Injection site swelling [Unknown]
  - Injection site erythema [Unknown]
  - Injection site warmth [Unknown]
  - Fatigue [Recovering/Resolving]
